FAERS Safety Report 20088677 (Version 7)
Quarter: 2024Q4

REPORT INFORMATION
  Report Type: Spontaneous
  Country: US (occurrence: US)
  Receive Date: 20211119
  Receipt Date: 20241213
  Transmission Date: 20250115
  Serious: Yes (Other)
  Sender: AMGEN
  Company Number: US-AMGEN-USASP2021180212

PATIENT
  Age: 50 Year
  Sex: Female

DRUGS (11)
  1. OTEZLA [Suspect]
     Active Substance: APREMILAST
     Indication: Psoriatic arthropathy
     Dosage: 30 MILLIGRAM, BID
     Route: 048
     Dates: start: 20191008
  2. OTEZLA [Suspect]
     Active Substance: APREMILAST
     Dosage: 30 MILLIGRAM, QD
     Route: 048
     Dates: start: 20230811
  3. FOLIC ACID [Concomitant]
     Active Substance: FOLIC ACID
     Dosage: 1000 MICROGRAM
     Route: 065
  4. FOLIC ACID [Concomitant]
     Active Substance: FOLIC ACID
     Dosage: 1 MILLIGRAM
  5. MELOXICAM [Concomitant]
     Active Substance: MELOXICAM
     Dosage: UNK
     Route: 065
  6. PROPRANOLOL [Concomitant]
     Active Substance: PROPRANOLOL HYDROCHLORIDE
     Dosage: 60 MILLIGRAM AND 80 MILLIGRAM
     Route: 065
  7. METHOTREXATE [Concomitant]
     Active Substance: METHOTREXATE
     Dosage: 15 MILLIGRAM, QWK AND (2.5 MILLIGRAM)
     Route: 065
  8. TOPIRAMATE [Concomitant]
     Active Substance: TOPIRAMATE
     Dosage: 50 MILLIGRAM
     Route: 065
  9. ATORVASTATIN [Concomitant]
     Active Substance: ATORVASTATIN
     Dosage: 20 MILLIGRAM AND 40 MILLIGRAM
  10. ELETRIPTAN [Concomitant]
     Active Substance: ELETRIPTAN
     Dosage: 40 MILLIGRAM
  11. UBRELVY [Concomitant]
     Active Substance: UBROGEPANT
     Dosage: 100 MILLIGRAM

REACTIONS (10)
  - Psoriatic arthropathy [Unknown]
  - Therapy non-responder [Unknown]
  - Eye pain [Not Recovered/Not Resolved]
  - Product dose omission issue [Unknown]
  - SARS-CoV-2 test positive [Unknown]
  - Respiratory tract congestion [Unknown]
  - Eye irritation [Unknown]
  - Pyrexia [Unknown]
  - Oropharyngeal pain [Unknown]
  - Headache [Unknown]

NARRATIVE: CASE EVENT DATE: 20211001
